FAERS Safety Report 8293218-1 (Version None)
Quarter: 2012Q2

REPORT INFORMATION
  Report Type: 
  Country: None (occurrence: None)
  Receive Date: 20120417
  Receipt Date: 20110407
  Transmission Date: 20120825
  Serious: No
  Sender: FDA-Public Use
  Company Number: US-ASTRAZENECA-2010SE53975

PATIENT
  Age: 36 Year
  Sex: Male

DRUGS (4)
  1. NEXIUM [Suspect]
     Route: 048
  2. ZOMIG [Suspect]
     Route: 048
  3. ZITHROMAX [Concomitant]
  4. COUGH SUPPRESSANT [Concomitant]

REACTIONS (2)
  - SINUSITIS [None]
  - MEMORY IMPAIRMENT [None]
